FAERS Safety Report 16822659 (Version 3)
Quarter: 2019Q4

REPORT INFORMATION
  Report Type: Spontaneous
  Country: US (occurrence: US)
  Receive Date: 20190918
  Receipt Date: 20191018
  Transmission Date: 20200122
  Serious: No
  Sender: FDA-Public Use
  Company Number: US-PFIZER INC-2019401801

PATIENT
  Age: 90 Year
  Sex: Male

DRUGS (1)
  1. TAFAMIDIS MEGLUMINE [Suspect]
     Active Substance: TAFAMIDIS MEGLUMINE
     Indication: CARDIAC AMYLOIDOSIS
     Dosage: 80 MG, DAILY
     Route: 048
     Dates: start: 201906

REACTIONS (2)
  - Taste disorder [Not Recovered/Not Resolved]
  - Hyperglycaemia [Not Recovered/Not Resolved]
